FAERS Safety Report 4295196-9 (Version None)
Quarter: 2004Q1

REPORT INFORMATION
  Report Type: 
  Country: None (occurrence: None)
  Receive Date: 20040211
  Receipt Date: 20040106
  Transmission Date: 20041129
  Serious: Yes (Death, Hospitalization, Other)
  Sender: FDA-Public Use
  Company Number: 2003-BP-07212BR

PATIENT
  Age: 71 Year
  Sex: Male

DRUGS (7)
  1. SPIRIVA [Suspect]
     Indication: CHRONIC OBSTRUCTIVE AIRWAYS DISEASE
     Dosage: 18 MCG (18MCG, 1 KA OAD),IH
     Route: 055
     Dates: start: 20030720, end: 20030820
  2. SPIRIVA [Suspect]
     Indication: EMPHYSEMA
     Dosage: 18 MCG (18MCG, 1 KA OAD),IH
     Route: 055
     Dates: start: 20030720, end: 20030820
  3. COMBIVENT [Suspect]
     Indication: CHRONIC OBSTRUCTIVE AIRWAYS DISEASE
     Dosage: 80/480 MCG  (SEE TEXT , 1 PUFF/FOUR TIMES A DAY (STRENGTH: 20/120 MCG) IH
     Route: 055
  4. COMBIVENT [Suspect]
     Indication: EMPHYSEMA
     Dosage: 80/480 MCG  (SEE TEXT , 1 PUFF/FOUR TIMES A DAY (STRENGTH: 20/120 MCG) IH
     Route: 055
  5. METICORTEN (PREDNISONE) (TA) [Suspect]
     Indication: CHRONIC OBSTRUCTIVE AIRWAYS DISEASE
     Dosage: 1 TA/OAD, PO
     Route: 048
  6. METICORTEN (PREDNISONE) (TA) [Suspect]
     Indication: EMPHYSEMA
     Dosage: 1 TA/OAD, PO
     Route: 048
  7. AEROLIN (SALBUTAMOL SULFATE) [Concomitant]
     Route: 055

REACTIONS (6)
  - ACUTE PULMONARY OEDEMA [None]
  - CARDIAC FAILURE [None]
  - CARDIO-RESPIRATORY ARREST [None]
  - GENERALISED OEDEMA [None]
  - NERVOUSNESS [None]
  - URINARY RETENTION [None]
